FAERS Safety Report 13459802 (Version 1)
Quarter: 2017Q2

REPORT INFORMATION
  Report Type: Spontaneous
  Country: IE (occurrence: IE)
  Receive Date: 20170420
  Receipt Date: 20170420
  Transmission Date: 20170830
  Serious: Yes (Hospitalization)
  Sender: FDA-Public Use
  Company Number: IE-BAXTER-2017BAX015256

PATIENT
  Sex: Male
  Weight: 108 kg

DRUGS (4)
  1. WATER FOR INJECTION [Suspect]
     Active Substance: WATER
     Indication: MEDICATION DILUTION
     Dosage: FOUR TIMES A DAY, APPROX. INFUSION TIME 30 MINS
     Route: 042
     Dates: start: 20170323, end: 20170403
  2. FLOXAPEN [Suspect]
     Active Substance: FLUCLOXACILLIN
     Indication: DEVICE RELATED INFECTION
     Dosage: FOUR TIMES A DAY, APPROX. INFUSION TIME 30 MINS
     Route: 042
     Dates: start: 20170323, end: 20170403
  3. PANADOL [Concomitant]
     Active Substance: ACETAMINOPHEN
     Indication: PRODUCT USED FOR UNKNOWN INDICATION
     Dosage: PRN
     Route: 065
  4. SODIUM CHLORIDE INTRAVENOUS INFUSION BP 0.9% W/V [Suspect]
     Active Substance: SODIUM CHLORIDE
     Indication: MEDICATION DILUTION
     Dosage: FOUR TIMES A DAY, APPROX. INFUSION TIME 30 MINS
     Route: 042
     Dates: start: 20170323, end: 20170403

REACTIONS (1)
  - Hypersensitivity [Recovering/Resolving]

NARRATIVE: CASE EVENT DATE: 2017
